FAERS Safety Report 6588483-2 (Version None)
Quarter: 2010Q1

REPORT INFORMATION
  Report Type: 
  Country: None (occurrence: None)
  Receive Date: 20100218
  Receipt Date: 20091204
  Transmission Date: 20100710
  Serious: Yes (Other)
  Sender: FDA-Public Use
  Company Number: US-ALLERGAN-0915496US

PATIENT
  Age: 57 Year
  Sex: Female

DRUGS (6)
  1. BOTOX [Suspect]
     Indication: TORTICOLLIS
     Dosage: 1500 UNITS, SINGLE
     Route: 030
     Dates: start: 20091001, end: 20091001
  2. CYMBALTA [Concomitant]
  3. TYLENOL-500 [Concomitant]
  4. NEXIUM [Concomitant]
     Indication: GASTROOESOPHAGEAL REFLUX DISEASE
  5. KLONOPIN [Concomitant]
     Dosage: UNK
  6. MULTI-VITAMINS [Concomitant]

REACTIONS (15)
  - ASTHENIA [None]
  - BLOOD PRESSURE INCREASED [None]
  - CHILLS [None]
  - DYSGEUSIA [None]
  - DYSPHAGIA [None]
  - DYSPNOEA [None]
  - EYELID OEDEMA [None]
  - FATIGUE [None]
  - HEAD DISCOMFORT [None]
  - HEADACHE [None]
  - HEART RATE INCREASED [None]
  - INFLUENZA LIKE ILLNESS [None]
  - LETHARGY [None]
  - PYREXIA [None]
  - THROAT TIGHTNESS [None]
